FAERS Safety Report 12481923 (Version 1)
Quarter: 2016Q2

REPORT INFORMATION
  Report Type: Spontaneous
  Country: US (occurrence: US)
  Receive Date: 20160620
  Receipt Date: 20160620
  Transmission Date: 20160815
  Serious: Yes (Hospitalization)
  Sender: FDA-Public Use
  Company Number: US-GE HEALTHCARE MEDICAL DIAGNOSTICS-OMPQ-PR-1606L-0965

PATIENT
  Age: 36 Year
  Sex: Female

DRUGS (9)
  1. LIDOCAINE. [Suspect]
     Active Substance: LIDOCAINE
     Route: 037
  2. NORMAL SALINE [Concomitant]
     Active Substance: SODIUM CHLORIDE
     Route: 037
  3. TOPIRAMATE. [Concomitant]
     Active Substance: TOPIRAMATE
  4. MELOXICAM. [Concomitant]
     Active Substance: MELOXICAM
  5. TRIAMCINOLONE [Suspect]
     Active Substance: TRIAMCINOLONE
     Route: 037
  6. OMNIPAQUE [Suspect]
     Active Substance: IOHEXOL
     Indication: RADICULAR PAIN
     Dosage: DOSE NOT REPORTED
     Route: 037
  7. OMNIPAQUE [Suspect]
     Active Substance: IOHEXOL
     Indication: THERAPEUTIC PROCEDURE
  8. LOCAL ANESTHETICS [Suspect]
     Active Substance: UNSPECIFIED INGREDIENT
     Route: 037
  9. STEROIDS [Suspect]
     Active Substance: UNSPECIFIED INGREDIENT
     Route: 037

REACTIONS (5)
  - Anaphylactoid reaction [Recovered/Resolved]
  - Injection site extravasation [Recovered/Resolved]
  - Lipoma [Recovering/Resolving]
  - Incorrect route of drug administration [Recovered/Resolved]
  - Off label use [Recovered/Resolved]
